FAERS Safety Report 6277937-4 (Version None)
Quarter: 2009Q3

REPORT INFORMATION
  Report Type: 
  Country: None (occurrence: None)
  Receive Date: 20090720
  Receipt Date: 20090709
  Transmission Date: 20100115
  Serious: Yes (Other)
  Sender: FDA-Public Use
  Company Number: ADR6572009 (ARROW LOG NO: 2009AG0189)

PATIENT
  Age: 15 Year
  Sex: Female

DRUGS (2)
  1. LAMOTRIGINE [Suspect]
     Indication: EPILEPSY
     Dosage: ORAL
     Route: 048
  2. OXCARBAZEPINE [Concomitant]

REACTIONS (2)
  - DRUG HYPERSENSITIVITY [None]
  - PYREXIA [None]
